FAERS Safety Report 5053879-7 (Version None)
Quarter: 2006Q3

REPORT INFORMATION
  Report Type: 
  Country: None (occurrence: None)
  Receive Date: 20060718
  Receipt Date: 20060710
  Transmission Date: 20061208
  Serious: Yes (Hospitalization, Other)
  Sender: FDA-Public Use
  Company Number: US-JNJFOC-20060702754

PATIENT
  Sex: Female

DRUGS (6)
  1. FENTANYL TRANSDERMAL SYSTEM [Suspect]
     Indication: PAIN
     Route: 062
  2. PREDNISONE [Concomitant]
     Indication: CROHN'S DISEASE
     Route: 048
  3. LASIX [Concomitant]
     Indication: DIURETIC THERAPY
     Route: 048
  4. OMEPRAZOLE [Concomitant]
     Indication: GASTRIC DISORDER
     Route: 048
  5. LISINOPRIL [Concomitant]
     Indication: HYPERTENSION
     Route: 048
  6. PREMARIN [Concomitant]
     Indication: HORMONE REPLACEMENT THERAPY
     Route: 048

REACTIONS (1)
  - CROHN'S DISEASE [None]
